FAERS Safety Report 6128888-7 (Version None)
Quarter: 2009Q1

REPORT INFORMATION
  Report Type: 
  Country: None (occurrence: None)
  Receive Date: 20090320
  Receipt Date: 20090310
  Transmission Date: 20090719
  Serious: Yes (Other)
  Sender: FDA-Public Use
  Company Number: 2009-00892

PATIENT
  Age: 68 Year
  Sex: Male
  Weight: 74.8 kg

DRUGS (7)
  1. VELCADE [Suspect]
     Indication: MANTLE CELL LYMPHOMA
     Dosage: 1.3 MG/M2, IV BOLUS
     Route: 040
     Dates: start: 20080204, end: 20080502
  2. RITUXIMAB (RITUXIMAB) INJECTION 375MG/M2 [Suspect]
     Indication: MANTLE CELL LYMPHOMA
     Dosage: 375 M/M2, INTRAVENOUS
     Route: 042
     Dates: start: 20080204, end: 20080429
  3. CYCLOPHOSPHAMIDE [Suspect]
     Indication: MANTLE CELL LYMPHOMA
     Dosage: 300MG/M2, INTRAVENOUS
     Route: 042
     Dates: start: 20080204, end: 20080501
  4. DOXORUBICIN HCL [Suspect]
     Indication: MANTLE CELL LYMPHOMA
     Dosage: 25 MG/M2, INTRAVENOUS
     Route: 042
     Dates: start: 20080204, end: 20080501
  5. VINCRISTINE [Suspect]
     Indication: MANTLE CELL LYMPHOMA
     Dosage: 1 MG, IV BOLUS
     Route: 040
     Dates: start: 20080204, end: 20080501
  6. DEXAMETHASONE [Suspect]
     Indication: MANTLE CELL LYMPHOMA
     Dosage: 40 MG, INTRAVENOUS
     Route: 042
     Dates: start: 20080204, end: 20080502
  7. NEULASTA [Suspect]
     Indication: MANTLE CELL LYMPHOMA
     Dosage: 6 MG, SUBCUTANEOUS
     Route: 058
     Dates: start: 20080204, end: 20080503

REACTIONS (4)
  - ACTIVITIES OF DAILY LIVING IMPAIRED [None]
  - ATAXIA [None]
  - KERATITIS [None]
  - VISION BLURRED [None]
